FAERS Safety Report 10956545 (Version 1)
Quarter: 2015Q1

REPORT INFORMATION
  Report Type: Report from Study
  Country: US (occurrence: US)
  Receive Date: 20150326
  Receipt Date: 20150326
  Transmission Date: 20150721
  Serious: Yes (Hospitalization)
  Sender: FDA-Public Use
  Company Number: US-SA-2013SA126160

PATIENT
  Age: 55 Year
  Sex: Female

DRUGS (2)
  1. AUBAGIO [Suspect]
     Active Substance: TERIFLUNOMIDE
     Indication: RELAPSING-REMITTING MULTIPLE SCLEROSIS
     Dosage: START: 6 MONTHS AGO
     Route: 048
     Dates: start: 20130124
  2. AUBAGIO [Suspect]
     Active Substance: TERIFLUNOMIDE
     Indication: RELAPSING-REMITTING MULTIPLE SCLEROSIS
     Dosage: START: 6 MONTHS AGO
     Route: 048
     Dates: start: 20130514

REACTIONS (5)
  - Unevaluable event [Unknown]
  - Psoriasis [Unknown]
  - Rash macular [Unknown]
  - Skin disorder [Unknown]
  - Pain [Unknown]
